FAERS Safety Report 7260765-0 (Version None)
Quarter: 2011Q1

REPORT INFORMATION
  Report Type: 
  Country: None (occurrence: None)
  Receive Date: 20110130
  Receipt Date: 20101227
  Transmission Date: 20110831
  Serious: No
  Sender: FDA-Public Use
  Company Number: US-ABBOTT-10P-163-0693584-00

PATIENT
  Sex: Male
  Weight: 2.884 kg

DRUGS (2)
  1. HUMIRA [Suspect]
     Route: 063
  2. HUMIRA [Suspect]
     Indication: DRUG EXPOSURE DURING PREGNANCY
     Route: 064

REACTIONS (3)
  - DRUG EXPOSURE VIA BREAST MILK [None]
  - PREMATURE BABY [None]
  - DRUG EXPOSURE DURING PREGNANCY [None]
